FAERS Safety Report 4516503-5 (Version None)
Quarter: 2005Q1

REPORT INFORMATION
  Report Type: 
  Country: None (occurrence: None)
  Receive Date: 20041027
  Receipt Date: 20040721
  Transmission Date: 20050727
  Serious: No
  Sender: FDA-Public Use
  Company Number: US084345

PATIENT
  Sex: 0

DRUGS (1)
  1. SENSIPAR [Suspect]
     Indication: HYPERPARATHYROIDISM SECONDARY

REACTIONS (2)
  - HYPOAESTHESIA ORAL [None]
  - OEDEMA MOUTH [None]
